FAERS Safety Report 6123120-2 (Version None)
Quarter: 2009Q1

REPORT INFORMATION
  Report Type: 
  Country: None (occurrence: None)
  Receive Date: 20090318
  Receipt Date: 20090309
  Transmission Date: 20090719
  Serious: Yes (Other)
  Sender: FDA-Public Use
  Company Number: US-AMGEN-QUU337428

PATIENT
  Age: 66 Year
  Sex: Male

DRUGS (4)
  1. ARANESP [Suspect]
     Indication: DIALYSIS
     Route: 042
  2. ASPIRIN [Concomitant]
  3. COUMADIN [Concomitant]
  4. IMURAN [Concomitant]

REACTIONS (2)
  - BONE MARROW FAILURE [None]
  - THERAPEUTIC RESPONSE DECREASED [None]
